FAERS Safety Report 8512216-3 (Version None)
Quarter: 2012Q3

REPORT INFORMATION
  Report Type: 
  Country: None (occurrence: None)
  Receive Date: 20120716
  Receipt Date: 19990611
  Transmission Date: 20120928
  Serious: No
  Sender: FDA-Public Use
  Company Number: US-ROCHE-208449

PATIENT
  Sex: Female
  Weight: 59 kg

DRUGS (4)
  1. ACCUTANE [Suspect]
     Route: 048
     Dates: start: 19990408, end: 19990417
  2. CITRACAL [Concomitant]
     Indication: VITAMIN SUPPLEMENTATION
     Route: 048
  3. ACCUTANE [Suspect]
     Indication: ACNE CYSTIC
     Route: 048
     Dates: start: 19990119, end: 19990326
  4. IRON SUPPLEMENT NOS [Concomitant]
     Indication: ANAEMIA
     Route: 048

REACTIONS (15)
  - HEADACHE [None]
  - DIARRHOEA [None]
  - HAEMATOCRIT DECREASED [None]
  - HAEMOGLOBIN DECREASED [None]
  - DIZZINESS [None]
  - NAUSEA [None]
  - GASTROENTERITIS VIRAL [None]
  - ABDOMINAL PAIN [None]
  - VOMITING [None]
  - VAGINAL LACERATION [None]
  - LIP DRY [None]
  - PYREXIA [None]
  - EPISTAXIS [None]
  - HAEMORRHAGE [None]
  - VULVOVAGINAL MYCOTIC INFECTION [None]
